FAERS Safety Report 18273399 (Version 2)
Quarter: 2020Q4

REPORT INFORMATION
  Report Type: Spontaneous
  Country: PT (occurrence: PT)
  Receive Date: 20200916
  Receipt Date: 20201014
  Transmission Date: 20210113
  Serious: Yes (Other)
  Sender: FDA-Public Use
  Company Number: PT-009507513-2009PRT004750

PATIENT
  Age: 77 Year
  Sex: Female

DRUGS (3)
  1. CHOLECALCIFEROL [Concomitant]
     Active Substance: CHOLECALCIFEROL
     Dosage: UNK
     Route: 048
     Dates: start: 20200816
  2. ZOCOR [Concomitant]
     Active Substance: SIMVASTATIN
     Indication: HYPERCHOLESTEROLAEMIA
     Dosage: FILM COATED TABLET
     Route: 048
  3. FOSAVANCE [Suspect]
     Active Substance: ALENDRONATE SODIUM\CHOLECALCIFEROL
     Indication: OSTEOPOROSIS
     Dosage: 1 DOSAGE FORM, QW
     Route: 048
     Dates: start: 20200817

REACTIONS (2)
  - Vision blurred [Unknown]
  - Rash erythematous [Unknown]

NARRATIVE: CASE EVENT DATE: 20200824
